FAERS Safety Report 7081796-X (Version None)
Quarter: 2010Q4

REPORT INFORMATION
  Report Type: 
  Country: None (occurrence: None)
  Receive Date: 20101103
  Receipt Date: 20101021
  Transmission Date: 20110411
  Serious: Yes (Other)
  Sender: FDA-Public Use
  Company Number: KR-ELI_LILLY_AND_COMPANY-KR201010007022

PATIENT
  Age: 60 Year
  Sex: Female

DRUGS (9)
  1. CYMBALTA [Suspect]
     Indication: MAJOR DEPRESSION
     Dosage: 60 MG, DAILY (1/D)
  2. CYMBALTA [Suspect]
     Dosage: 120 MG, UNK
  3. CYMBALTA [Suspect]
     Dosage: 90 MG, UNK
  4. CYMBALTA [Suspect]
     Dosage: 60 MG, UNK
  5. MIRTAZAPINE [Concomitant]
  6. PALIPERIDONE [Concomitant]
  7. ALPRAZOLAM [Concomitant]
  8. QUETIAPINE [Concomitant]
  9. IMIPRAMINE [Concomitant]

REACTIONS (3)
  - BLOOD PRESSURE DECREASED [None]
  - DRUG INEFFECTIVE [None]
  - LOSS OF CONSCIOUSNESS [None]
